FAERS Safety Report 24793925 (Version 3)
Quarter: 2025Q2

REPORT INFORMATION
  Report Type: Report from Study
  Country: IT (occurrence: IT)
  Receive Date: 20241231
  Receipt Date: 20250629
  Transmission Date: 20250716
  Serious: Yes (Death, Life-Threatening, Hospitalization, Other)
  Sender: ABBVIE
  Company Number: IT-JNJFOC-20241279612

PATIENT
  Age: 77 Year
  Sex: Male
  Weight: 105 kg

DRUGS (1)
  1. IBRUTINIB [Suspect]
     Active Substance: IBRUTINIB
     Indication: Mantle cell lymphoma
     Route: 048
     Dates: start: 20240726, end: 20241117

REACTIONS (2)
  - Haemothorax [Fatal]
  - Mantle cell lymphoma [Fatal]

NARRATIVE: CASE EVENT DATE: 20241111
